FAERS Safety Report 5738632-0 (Version None)
Quarter: 2008Q2

REPORT INFORMATION
  Report Type: 
  Country: None (occurrence: None)
  Receive Date: 20080513
  Receipt Date: 20080429
  Transmission Date: 20081010
  Serious: Yes (Other)
  Sender: FDA-Public Use
  Company Number: TRP_05657_2008

PATIENT
  Age: 45 Year
  Sex: Male

DRUGS (2)
  1. RIBASPHERE [Suspect]
     Indication: HEPATITIS C
     Dosage: DF ORAL
     Route: 048
     Dates: start: 20080308
  2. PEG-INTRON [Suspect]
     Indication: HEPATITIS C
     Dosage: DF SUBCUTANEOUS
     Route: 058
     Dates: start: 20080308

REACTIONS (13)
  - CONDITION AGGRAVATED [None]
  - CONVULSION [None]
  - COUGH [None]
  - DEHYDRATION [None]
  - DYSPNOEA [None]
  - FEELING ABNORMAL [None]
  - HEADACHE [None]
  - HYPERHIDROSIS [None]
  - LOSS OF CONSCIOUSNESS [None]
  - ORAL HERPES [None]
  - POLLAKIURIA [None]
  - SEASONAL ALLERGY [None]
  - WHITE BLOOD CELL COUNT DECREASED [None]
